FAERS Safety Report 9478429 (Version 1)
Quarter: 2013Q3

REPORT INFORMATION
  Report Type: Spontaneous
  Country: US (occurrence: None)
  Receive Date: 20130822
  Receipt Date: 20130822
  Transmission Date: 20140515
  Serious: Yes (Hospitalization)
  Sender: FDA-Public Use
  Company Number: 2013-3394

PATIENT
  Age: 46 Year
  Sex: Male

DRUGS (6)
  1. SOMATULINE DEPOT [Suspect]
     Indication: ACROMEGALY
     Dosage: (60 MG, 1 IN 28 D)
     Route: 058
     Dates: start: 20130709, end: 20130709
  2. SERTZOLINE (ALL OTHER THERAPEUTICS PRODUCT [Concomitant]
     Dosage: 60 MG 1 IN 28 D
     Route: 058
  3. SYNTHROID (LEVOTHYROXINE SODIUM) [Concomitant]
  4. BUPROPION HCL (BUPROPION HYDROCHLORIDE) [Concomitant]
  5. TESTOSERONE (TESTOSTERONE) [Concomitant]
  6. TRAZADONE HCL (TRAZODONE HYDROCHLORIDE) [Concomitant]

REACTIONS (1)
  - Mental disorder [None]
